FAERS Safety Report 13276252 (Version 1)
Quarter: 2017Q1

REPORT INFORMATION
  Report Type: Spontaneous
  Country: US (occurrence: US)
  Receive Date: 20170228
  Receipt Date: 20170228
  Transmission Date: 20170428
  Serious: Yes (Hospitalization, Disabling)
  Sender: FDA-Public Use
  Company Number: None

PATIENT
  Age: 36 Year
  Sex: Female
  Weight: 117 kg

DRUGS (4)
  1. FENTANYL. [Suspect]
     Active Substance: FENTANYL
     Indication: ENDOSCOPY
     Dates: start: 20160901, end: 20160913
  2. VITAMIN D3 [Concomitant]
     Active Substance: CHOLECALCIFEROL
  3. OXIMETER [Concomitant]
  4. FENTANYL. [Suspect]
     Active Substance: FENTANYL
     Indication: COLONOSCOPY
     Dates: start: 20160901, end: 20160913

REACTIONS (5)
  - Documented hypersensitivity to administered product [None]
  - Lung disorder [None]
  - Respiratory distress [None]
  - Decreased activity [None]
  - Sleep apnoea syndrome [None]

NARRATIVE: CASE EVENT DATE: 20160901
